FAERS Safety Report 8972178 (Version 1)
Quarter: 2012Q4

REPORT INFORMATION
  Report Type: Spontaneous
  Country: US (occurrence: None)
  Receive Date: 20121211
  Receipt Date: 20121211
  Transmission Date: 20130627
  Serious: Yes (Other)
  Sender: FDA-Public Use
  Company Number: AUR-APL-2012-05217

PATIENT
  Age: 63 Year
  Sex: Male

DRUGS (2)
  1. VENLAFAXINE [Suspect]
     Indication: DRUG USE FOR UNKNOWN INDICATION
  2. EFFEXOR XR [Suspect]
     Dates: start: 201211

REACTIONS (5)
  - Drug ineffective [None]
  - Hallucination [None]
  - Insomnia [None]
  - Nervousness [None]
  - Product substitution issue [None]
